FAERS Safety Report 9500430 (Version 1)
Quarter: 2013Q3

REPORT INFORMATION
  Report Type: Spontaneous
  Country: US (occurrence: None)
  Receive Date: 20130903
  Receipt Date: 20130903
  Transmission Date: 20140515
  Serious: Yes (Other)
  Sender: FDA-Public Use
  Company Number: 97931

PATIENT
  Age: 58 Year
  Sex: Male

DRUGS (1)
  1. METOPROLOL TARTRATE [Suspect]
     Indication: TACHYARRHYTHMIA
     Dosage: 5MG/IV; THEN 10MG/IV
     Route: 042
     Dates: start: 20100331

REACTIONS (6)
  - Heart rate increased [None]
  - Ventricular tachycardia [None]
  - Hypertensive crisis [None]
  - Headache [None]
  - Abdominal discomfort [None]
  - Malaise [None]
